FAERS Safety Report 8437780-4 (Version None)
Quarter: 2012Q2

REPORT INFORMATION
  Report Type: 
  Country: None (occurrence: None)
  Receive Date: 20120614
  Receipt Date: 20120509
  Transmission Date: 20120825
  Serious: No
  Sender: FDA-Public Use
  Company Number: US-AMGEN-USASP2012023132

PATIENT
  Age: 77 Year
  Sex: Female
  Weight: 81.633 kg

DRUGS (4)
  1. PROLIA [Suspect]
     Indication: OSTEOPOROSIS POSTMENOPAUSAL
     Dosage: 60 MG, Q6MO
     Dates: start: 20120314
  2. METFORMIN HCL [Concomitant]
     Dosage: 500 MG, QD
     Route: 048
  3. TRILIPIX [Concomitant]
     Dosage: 135 MG, QD
     Route: 048
  4. CAPTOPRIL [Concomitant]
     Dosage: 100 MG, QD
     Route: 048

REACTIONS (2)
  - PAIN IN EXTREMITY [None]
  - NECK PAIN [None]
